FAERS Safety Report 5145332-7 (Version None)
Quarter: 2006Q4

REPORT INFORMATION
  Report Type: 
  Country: None (occurrence: None)
  Receive Date: 20061107
  Receipt Date: 20061020
  Transmission Date: 20070319
  Serious: Yes (Death, Hospitalization)
  Sender: FDA-Public Use
  Company Number: US-ELI_LILLY_AND_COMPANY-US200610003632

PATIENT
  Age: 60 Year
  Sex: Male
  Weight: 75.283 kg

DRUGS (4)
  1. ALIMTA [Suspect]
     Indication: NON-SMALL CELL LUNG CANCER
     Dosage: UNK, UNK
     Route: 042
     Dates: start: 20061006, end: 20061006
  2. PERCOCET [Concomitant]
     Indication: PAIN
  3. FOLIC ACID [Concomitant]
     Indication: VITAMIN SUPPLEMENTATION
     Dosage: UNK, UNK
     Dates: start: 20061006, end: 20061027
  4. VITAMIN B-12 [Concomitant]
     Indication: VITAMIN SUPPLEMENTATION

REACTIONS (3)
  - BONE MARROW FAILURE [None]
  - MALAISE [None]
  - RENAL FAILURE [None]
